FAERS Safety Report 20430033 (Version 1)
Quarter: 2022Q1

REPORT INFORMATION
  Report Type: Report from Study
  Country: FR (occurrence: FR)
  Receive Date: 20220204
  Receipt Date: 20220204
  Transmission Date: 20220424
  Serious: Yes (Hospitalization)
  Sender: FDA-Public Use
  Company Number: FR-SERVIER-S19005727

PATIENT

DRUGS (8)
  1. PEGASPARGASE [Suspect]
     Active Substance: PEGASPARGASE
     Indication: Acute lymphocytic leukaemia
     Dosage: 1275 IU, QD, D15, D43
     Route: 042
     Dates: start: 20181231, end: 20190130
  2. CYCLOPHOSPHAMIDE [Suspect]
     Active Substance: CYCLOPHOSPHAMIDE
     Indication: Acute lymphocytic leukaemia
     Dosage: 520 MG, D1 TO D29
     Route: 042
     Dates: start: 20181217, end: 20190114
  3. CYTARABINE [Suspect]
     Active Substance: CYTARABINE
     Indication: Acute lymphocytic leukaemia
     Dosage: 40 MG, D3 TO D6, D10 TO D13, D31 TO D34, D38 TO D41
     Route: 042
     Dates: start: 20181219, end: 20190128
  4. CYTARABINE [Suspect]
     Active Substance: CYTARABINE
     Dosage: 25 MG, ON D3, D16, D31 AND D46
     Route: 037
     Dates: start: 20181219, end: 20190130
  5. METHOTREXATE [Suspect]
     Active Substance: METHOTREXATE
     Indication: Acute lymphocytic leukaemia
     Dosage: 10 MG, ON D3, D16, D31, D46
     Route: 037
     Dates: start: 20181219, end: 20190202
  6. HYDROCORTISONE [Suspect]
     Active Substance: HYDROCORTISONE
     Indication: Acute lymphocytic leukaemia
     Dosage: 12.5 MG, ON D3, D16, D31, D46
     Route: 037
     Dates: start: 20181219, end: 20190202
  7. MERCAPTOPURINE [Suspect]
     Active Substance: MERCAPTOPURINE
     Indication: Acute lymphocytic leukaemia
     Dosage: 37 MG (D1 TO D4, D29 TO D42
     Route: 048
     Dates: start: 20181217, end: 20190329
  8. VINCRISTINE [Suspect]
     Active Substance: VINCRISTINE
     Indication: Acute lymphocytic leukaemia
     Dosage: 0.78 MG, D15, D22, D83, D90
     Route: 042
     Dates: start: 20181231, end: 20190206

REACTIONS (1)
  - Bronchopulmonary aspergillosis [Recovered/Resolved]

NARRATIVE: CASE EVENT DATE: 20190203
